FAERS Safety Report 13680337 (Version 1)
Quarter: 2017Q2

REPORT INFORMATION
  Report Type: Report from Study
  Country: US (occurrence: US)
  Receive Date: 20170622
  Receipt Date: 20170622
  Transmission Date: 20170830
  Serious: Yes (Death, Hospitalization, Other)
  Sender: FDA-Public Use
  Company Number: US-ASTRAZENECA-2017SE64787

PATIENT
  Age: 19 Year
  Sex: Female

DRUGS (3)
  1. OLAPARIB [Suspect]
     Active Substance: OLAPARIB
     Indication: SARCOMA
     Route: 048
     Dates: start: 20161005
  2. IRINOTECAN [Suspect]
     Active Substance: IRINOTECAN
     Indication: SARCOMA
     Dosage: 15.4 MG, IV DAY 1-7
     Route: 042
     Dates: start: 20161005
  3. TEMOZOLOMIDE. [Suspect]
     Active Substance: TEMOZOLOMIDE
     Indication: SARCOMA
     Dosage: 75 MG
     Route: 048
     Dates: start: 20161005

REACTIONS (5)
  - Platelet count decreased [Unknown]
  - Pain [Unknown]
  - Neutrophil count decreased [Unknown]
  - Lymphocyte count decreased [Unknown]
  - White blood cell count decreased [Unknown]

NARRATIVE: CASE EVENT DATE: 20161007
